FAERS Safety Report 5026880-7 (Version None)
Quarter: 2006Q2

REPORT INFORMATION
  Report Type: 
  Country: None (occurrence: None)
  Receive Date: 20060609
  Receipt Date: 20060602
  Transmission Date: 20061013
  Serious: Yes (Hospitalization)
  Sender: FDA-Public Use
  Company Number: FRWYE681802JUN06

PATIENT
  Age: 22 Year
  Sex: Female

DRUGS (2)
  1. EFFEXOR XR [Suspect]
     Dosage: 75 MG 1X PER 1 DAY ORAL
     Route: 048
     Dates: start: 20060410, end: 20060511
  2. OXAZEPAM [Concomitant]

REACTIONS (3)
  - AMNESIA [None]
  - EPILEPSY [None]
  - LOSS OF CONSCIOUSNESS [None]
